FAERS Safety Report 5979382-5 (Version None)
Quarter: 2008Q4

REPORT INFORMATION
  Report Type: 
  Country: None (occurrence: None)
  Receive Date: 20081204
  Receipt Date: 20081203
  Transmission Date: 20090506
  Serious: Yes (Death)
  Sender: FDA-Public Use
  Company Number: ES-SANOFI-SYNTHELABO-F01200801798

PATIENT
  Sex: Male
  Weight: 68 kg

DRUGS (4)
  1. CAPECITABINE [Suspect]
     Dosage: GIVEN ON DAY1-14
     Route: 048
     Dates: start: 20080611, end: 20081101
  2. BEVACIZUMAB [Suspect]
     Route: 042
     Dates: start: 20081107, end: 20081107
  3. SIMVASTATIN [Concomitant]
  4. OXALIPLATIN [Suspect]
     Indication: COLORECTAL CANCER
     Route: 042
     Dates: start: 20081107, end: 20081107

REACTIONS (3)
  - CHEST PAIN [None]
  - DYSPNOEA [None]
  - SUDDEN DEATH [None]
